FAERS Safety Report 6683557-X (Version None)
Quarter: 2010Q2

REPORT INFORMATION
  Report Type: 
  Country: None (occurrence: None)
  Receive Date: 20100415
  Receipt Date: 20100406
  Transmission Date: 20101027
  Serious: Yes (Disabling, Other)
  Sender: FDA-Public Use
  Company Number: IE-ABBOTT-10P-229-0627544-00

PATIENT
  Age: 40 Year
  Sex: Female

DRUGS (5)
  1. HUMIRA [Suspect]
     Indication: CROHN'S DISEASE
     Dosage: 80MG EVERY TWO WEEKS
     Route: 058
     Dates: start: 20080401, end: 20090901
  2. HUMIRA [Suspect]
     Route: 058
     Dates: start: 20090901, end: 20100101
  3. IRON [Concomitant]
     Indication: DRUG USE FOR UNKNOWN INDICATION
  4. LAXATIVE [Concomitant]
     Indication: DRUG USE FOR UNKNOWN INDICATION
  5. ANTIBIOTIC NASAL CREAM [Concomitant]
     Indication: DRUG USE FOR UNKNOWN INDICATION
     Route: 045

REACTIONS (3)
  - HYPOAESTHESIA [None]
  - INCORRECT DOSE ADMINISTERED [None]
  - MULTIPLE SCLEROSIS [None]
